FAERS Safety Report 5886576-6 (Version None)
Quarter: 2008Q3

REPORT INFORMATION
  Report Type: 
  Country: None (occurrence: None)
  Receive Date: 20080917
  Receipt Date: 20080904
  Transmission Date: 20090109
  Serious: Yes (Hospitalization)
  Sender: FDA-Public Use
  Company Number: FR-GENENTECH-256052

PATIENT
  Sex: Female
  Weight: 58 kg

DRUGS (6)
  1. RITUXIMAB [Suspect]
     Indication: B-CELL LYMPHOMA
     Dosage: 600 MG, QD
     Route: 042
     Dates: start: 20060627
  2. CYCLOPHOSPHAMIDE [Suspect]
     Indication: B-CELL LYMPHOMA
     Dosage: 1200 MG, QD
     Route: 042
     Dates: start: 20060627
  3. DOXORUBICIN HCL [Suspect]
     Indication: B-CELL LYMPHOMA
     Dosage: 20 MG, QD
     Route: 042
     Dates: start: 20060627
  4. VINCRISTINE [Suspect]
     Indication: B-CELL LYMPHOMA
     Dosage: 2 MG, QD
     Route: 042
     Dates: start: 20060627
  5. PREDNISONE TAB [Suspect]
     Indication: B-CELL LYMPHOMA
     Dosage: 80 MG, QD
     Route: 042
     Dates: start: 20060627
  6. VINDESINE [Suspect]
     Indication: B-CELL LYMPHOMA
     Dosage: 4.8 MG, QD
     Route: 042
     Dates: start: 20060808, end: 20060808

REACTIONS (2)
  - FEBRILE NEUTROPENIA [None]
  - GENERAL PHYSICAL HEALTH DETERIORATION [None]
